FAERS Safety Report 10313607 (Version 6)
Quarter: 2015Q2

REPORT INFORMATION
  Report Type: Spontaneous
  Country: US (occurrence: None)
  Receive Date: 20140716
  Receipt Date: 20150420
  Transmission Date: 20150821
  Serious: Yes (Hospitalization)
  Sender: FDA-Public Use
  Company Number: UNT-2014-003641

PATIENT
  Age: 13 Year
  Sex: Female
  Weight: 49.9 kg

DRUGS (11)
  1. ZYRTEC [Concomitant]
     Active Substance: CETIRIZINE HYDROCHLORIDE
  2. WARFARIN (WARFARIN) [Concomitant]
     Active Substance: WARFARIN
  3. FERROUS GLUCONATE (FERROUS GLUCONATE) [Concomitant]
     Active Substance: FERROUS GLUCONATE
  4. LANOXIN [Concomitant]
     Active Substance: DIGOXIN
  5. ORENITRAM [Suspect]
     Active Substance: TREPROSTINIL
     Indication: PULMONARY ARTERIAL HYPERTENSION
     Route: 048
     Dates: start: 20150202
  6. FLONASE [Concomitant]
     Active Substance: FLUTICASONE PROPIONATE
  7. REMODULIN [Suspect]
     Active Substance: TREPROSTINIL
     Indication: PULMONARY ARTERIAL HYPERTENSION
     Dosage: 0.084 UG/KG, CONTINUING, IV DRIP
     Route: 041
     Dates: start: 20130710
  8. ADCIRCA [Concomitant]
     Active Substance: TADALAFIL
  9. KENALOG [Concomitant]
     Active Substance: TRIAMCINOLONE ACETONIDE
  10. OXYGEN (OXYGEN) [Concomitant]
     Active Substance: OXYGEN
  11. VITAMIN D3 [Concomitant]
     Active Substance: CHOLECALCIFEROL

REACTIONS (19)
  - Pulmonary arterial hypertension [None]
  - Cellulitis [None]
  - Injection site pain [None]
  - Iron deficiency anaemia [None]
  - Dermatitis contact [None]
  - Scratch [None]
  - Staphylococcus test positive [None]
  - Anaemia [None]
  - Alopecia [None]
  - Nausea [None]
  - Body temperature increased [None]
  - Pruritus [None]
  - Culture wound positive [None]
  - Drug dose omission [None]
  - Diarrhoea [None]
  - Skin infection [None]
  - Injection site rash [None]
  - Abdominal discomfort [None]
  - Device related infection [None]

NARRATIVE: CASE EVENT DATE: 2014
